FAERS Safety Report 8817548 (Version 1)
Quarter: 2012Q4

REPORT INFORMATION
  Report Type: 
  Country: SE (occurrence: SE)
  Receive Date: 20121004
  Receipt Date: 20121004
  Transmission Date: 20130627
  Serious: Yes (Other)
  Sender: FDA-Public Use
  Company Number: PHHY2012SE052633

PATIENT
  Age: 13 Year
  Sex: Female

DRUGS (2)
  1. PREDNISOLONE [Suspect]
     Indication: AUTOIMMUNE HEPATITIS
     Dosage: 60 mg/day
  2. TACROLIMUS [Suspect]
     Indication: AUTOIMMUNE HEPATITIS

REACTIONS (8)
  - Hepatic failure [Unknown]
  - General physical health deterioration [Unknown]
  - Diabetes mellitus [Unknown]
  - Pancreatitis [Unknown]
  - Drug ineffective [Unknown]
  - Abdominal pain [Unknown]
  - Anorexia nervosa [Unknown]
  - Headache [Unknown]
